FAERS Safety Report 14921978 (Version 2)
Quarter: 2019Q2

REPORT INFORMATION
  Report Type: Spontaneous
  Country: FR (occurrence: FR)
  Receive Date: 20180522
  Receipt Date: 20190509
  Transmission Date: 20190711
  Serious: Yes (Death, Other)
  Sender: FDA-Public Use
  Company Number: FR-ROCHE-2127018

PATIENT
  Age: 12 Day
  Sex: Female
  Weight: 1.76 kg

DRUGS (2)
  1. ACTILYSE [Suspect]
     Active Substance: ALTEPLASE
     Indication: PULMONARY ARTERY THROMBOSIS
     Dosage: LOADING DOSE OF 0.1 MG/KG AND  MAINTENANCE AT 0.1 MG/KG/H FOR 3 H
     Route: 042
  2. HEPARIN [Concomitant]
     Active Substance: HEPARIN SODIUM
     Indication: PULMONARY ARTERY THROMBOSIS
     Dosage: 30 IU/KG/H
     Route: 065

REACTIONS (5)
  - Drug ineffective [Fatal]
  - Ischaemic stroke [Unknown]
  - Bronchitis viral [Fatal]
  - Congenital nephrotic syndrome [Unknown]
  - Hypoalbuminaemia [Unknown]
